FAERS Safety Report 5888475-2 (Version None)
Quarter: 2008Q3

REPORT INFORMATION
  Report Type: 
  Country: None (occurrence: None)
  Receive Date: 20080918
  Receipt Date: 20080905
  Transmission Date: 20090109
  Serious: Yes (Congenital Anomaly)
  Sender: FDA-Public Use
  Company Number: US-ELI_LILLY_AND_COMPANY-US200809001454

PATIENT

DRUGS (3)
  1. CYMBALTA [Suspect]
     Dosage: 60 MG, UNK
     Route: 064
     Dates: start: 20080401
  2. BUPROPION HYDROCHLORIDE [Concomitant]
     Dosage: 50 MG, 2/D
     Route: 064
  3. GABAPENTIN [Concomitant]
     Dosage: 1200 MG, DAILY (1/D)
     Route: 064

REACTIONS (4)
  - DRUG EXPOSURE DURING PREGNANCY [None]
  - MATERNAL DRUGS AFFECTING FOETUS [None]
  - PULMONARY VASCULAR DISORDER [None]
  - RENAL APLASIA [None]
